FAERS Safety Report 6095121-4 (Version None)
Quarter: 2009Q1

REPORT INFORMATION
  Report Type: 
  Country: None (occurrence: None)
  Receive Date: 20090227
  Receipt Date: 20080117
  Transmission Date: 20090719
  Serious: No
  Sender: FDA-Public Use
  Company Number: A0704956A

PATIENT
  Sex: Female

DRUGS (2)
  1. LAMICTAL [Suspect]
     Indication: DEPRESSION
     Route: 048
  2. UNKNOWN [Concomitant]

REACTIONS (4)
  - NAUSEA [None]
  - RASH [None]
  - VOMITING [None]
  - WITHDRAWAL SYNDROME [None]
